FAERS Safety Report 11198316 (Version 1)
Quarter: 2015Q2

REPORT INFORMATION
  Report Type: Report from Study
  Country: DK (occurrence: DK)
  Receive Date: 20150618
  Receipt Date: 20150618
  Transmission Date: 20150821
  Serious: Yes (Other)
  Sender: FDA-Public Use
  Company Number: DK-ROCHE-1594897

PATIENT

DRUGS (5)
  1. PEG-INTERFERON ALFA 2A [Suspect]
     Active Substance: PEGINTERFERON ALFA-2A
     Indication: MALIGNANT MELANOMA STAGE IV
     Dosage: ON DAY 1 IN FIRST WEEK
     Route: 065
  2. INTERLEUKIN-2 [Suspect]
     Active Substance: ALDESLEUKIN
     Dosage: 18 MU/M2 FOR 24 H
     Route: 065
  3. INTERLEUKIN-2 [Suspect]
     Active Substance: ALDESLEUKIN
     Dosage: 4.5 MU/M2 IN 24 H
     Route: 065
  4. INTERLEUKIN-2 [Suspect]
     Active Substance: ALDESLEUKIN
     Dosage: 18 MU/M2 FOR 12 H
     Route: 065
  5. INTERLEUKIN-2 [Suspect]
     Active Substance: ALDESLEUKIN
     Indication: MALIGNANT MELANOMA STAGE IV
     Dosage: 18 MU/M2 FOR 6 H
     Route: 065

REACTIONS (5)
  - Nausea [Unknown]
  - Pruritus [Unknown]
  - Neurotoxicity [Unknown]
  - Diarrhoea [Unknown]
  - Capillary leak syndrome [Unknown]
